FAERS Safety Report 6082489-8 (Version None)
Quarter: 2009Q1

REPORT INFORMATION
  Report Type: 
  Country: None (occurrence: None)
  Receive Date: 20090204
  Receipt Date: 20080325
  Transmission Date: 20090719
  Serious: Yes (Other)
  Sender: FDA-Public Use
  Company Number: 46581

PATIENT
  Age: 84 Year
  Sex: Female

DRUGS (1)
  1. HALOPERIDOL DECANOATE [Suspect]
     Dosage: 50MG IM
     Route: 030
     Dates: start: 20080324

REACTIONS (1)
  - EXTRAVASATION [None]
